FAERS Safety Report 5707703-7 (Version None)
Quarter: 2008Q2

REPORT INFORMATION
  Report Type: 
  Country: None (occurrence: None)
  Receive Date: 20080416
  Receipt Date: 20080408
  Transmission Date: 20081010
  Serious: Yes (Hospitalization)
  Sender: FDA-Public Use
  Company Number: FR-ABBOTT-08P-056-0445981-00

PATIENT
  Age: 30 Year
  Sex: Male

DRUGS (6)
  1. DEPAKOTE [Suspect]
     Indication: MANIA
     Route: 048
     Dates: end: 20080303
  2. DEPAKOTE [Suspect]
     Route: 048
     Dates: start: 20080304, end: 20080316
  3. DEPAKOTE [Suspect]
     Route: 048
     Dates: start: 20080317, end: 20080322
  4. RISPERIDONE [Concomitant]
     Indication: DRUG USE FOR UNKNOWN INDICATION
     Route: 048
  5. TROPATEPINE HYDROCHLORIDE [Concomitant]
     Indication: DRUG USE FOR UNKNOWN INDICATION
     Route: 048
  6. CLONAZEPAM [Concomitant]
     Indication: DRUG USE FOR UNKNOWN INDICATION

REACTIONS (8)
  - BLOOD BILIRUBIN INCREASED [None]
  - BLOOD CREATINE PHOSPHOKINASE INCREASED [None]
  - BLOOD FIBRINOGEN DECREASED [None]
  - HEPATIC ENZYME INCREASED [None]
  - LIVER INJURY [None]
  - NEUTROPENIA [None]
  - PYREXIA [None]
  - THROMBOCYTOPENIA [None]
